FAERS Safety Report 9938162 (Version 1)
Quarter: 2014Q1

REPORT INFORMATION
  Report Type: Spontaneous
  Country: US (occurrence: US)
  Receive Date: 20140303
  Receipt Date: 20140303
  Transmission Date: 20141002
  Serious: Yes (Other)
  Sender: FDA-Public Use
  Company Number: US-MERCK-1402USA013052

PATIENT
  Age: 74 Year
  Sex: Female

DRUGS (6)
  1. JANUVIA [Suspect]
     Indication: DIABETES MELLITUS
     Dosage: UNK
     Route: 048
  2. METFORMIN [Concomitant]
     Dosage: 100 MG, BID
  3. LANTUS [Concomitant]
     Dosage: 24 IU, HS
  4. SYNTHROID [Concomitant]
     Dosage: UNK
  5. AVAPRO [Concomitant]
     Dosage: UNK
  6. PRAVASTATIN SODIUM [Concomitant]
     Dosage: UNK

REACTIONS (3)
  - Pancreatitis [Unknown]
  - Rash [Unknown]
  - Abdominal pain [Unknown]
